FAERS Safety Report 9305323 (Version 1)
Quarter: 2013Q2

REPORT INFORMATION
  Report Type: Not Available
  Country: FR (occurrence: FR)
  Receive Date: 20130523
  Receipt Date: 20130523
  Transmission Date: 20140414
  Serious: Yes (Hospitalization)
  Sender: FDA-Public Use
  Company Number: FR-ASTELLAS-2013US005304

PATIENT
  Age: 71 Year
  Sex: Female

DRUGS (1)
  1. TARCEVA [Suspect]
     Indication: LUNG NEOPLASM MALIGNANT
     Dosage: 1 DF, UID/QD
     Route: 048
     Dates: start: 200705

REACTIONS (4)
  - Basal cell carcinoma [Recovered/Resolved]
  - Hyperkeratosis [Unknown]
  - Rash erythematous [Recovered/Resolved]
  - Rash vesicular [Recovered/Resolved]
